FAERS Safety Report 5017574-2 (Version None)
Quarter: 2006Q2

REPORT INFORMATION
  Report Type: 
  Country: None (occurrence: None)
  Receive Date: 20060601
  Receipt Date: 20060601
  Transmission Date: 20061013
  Serious: Yes (Hospitalization)
  Sender: FDA-Public Use
  Company Number: None

PATIENT
  Age: 87 Year
  Sex: Male
  Weight: 65.5 kg

DRUGS (8)
  1. ARANESP [Suspect]
     Indication: ANAEMIA
     Dosage: QOW
     Dates: start: 20050816
  2. CYPROHEPTADINE HCL [Concomitant]
  3. FLUOCINONIDE [Concomitant]
  4. TRAVOPROST SOL [Concomitant]
  5. GALANTAMINE HYDROBROMIDE [Concomitant]
  6. SIMVASTATIN [Concomitant]
  7. HYDROXYZINE [Concomitant]
  8. NIFEDIPINE [Concomitant]

REACTIONS (4)
  - BLOOD CREATININE INCREASED [None]
  - BLOOD UREA INCREASED [None]
  - PRURITUS [None]
  - RASH [None]
